FAERS Safety Report 7571916 (Version 2)
Quarter: 2012Q4

REPORT INFORMATION
  Report Type: 
  Country: US (occurrence: US)
  Receive Date: 20100903
  Receipt Date: 20121224
  Transmission Date: 20130627
  Serious: No
  Sender: FDA-Public Use
  Company Number: 2009BI031438

PATIENT
  Age: 50 Year
  Sex: Male

DRUGS (1)
  1. TYSABRI [Suspect]
     Indication: MULTIPLE SCLEROSIS
     Route: 042
     Dates: start: 20090605

REACTIONS (6)
  - Gait disturbance [Recovered/Resolved]
  - Bone pain [Not Recovered/Not Resolved]
  - Back pain [Not Recovered/Not Resolved]
  - Fatigue [Recovered/Resolved]
  - Dizziness [Recovered/Resolved]
  - Arthralgia [Not Recovered/Not Resolved]
